FAERS Safety Report 10268883 (Version 4)
Quarter: 2014Q3

REPORT INFORMATION
  Report Type: Spontaneous
  Country: JP (occurrence: JP)
  Receive Date: 20140630
  Receipt Date: 20140819
  Transmission Date: 20150326
  Serious: Yes (Death, Hospitalization)
  Sender: FDA-Public Use
  Company Number: JP-OTSUKA-JP-2014-13504

PATIENT
  Sex: Female

DRUGS (3)
  1. SAMSCA [Suspect]
     Active Substance: TOLVAPTAN
     Indication: OFF LABEL USE
  2. SAMSCA [Suspect]
     Active Substance: TOLVAPTAN
     Indication: OEDEMA
     Dosage: 7.5 MG MILLIGRAM(S), DAILY DOSE
     Route: 048
  3. SAMSCA [Suspect]
     Active Substance: TOLVAPTAN
     Indication: ASCITES

REACTIONS (2)
  - Off label use [Unknown]
  - Gastric cancer [Fatal]
